FAERS Safety Report 9700051 (Version 1)
Quarter: 2013Q4

REPORT INFORMATION
  Report Type: Spontaneous
  Country: SK (occurrence: SK)
  Receive Date: 20131121
  Receipt Date: 20131121
  Transmission Date: 20140711
  Serious: Yes (Death, Hospitalization)
  Sender: FDA-Public Use
  Company Number: SK-ROCHE-1301595

PATIENT
  Age: 27 Year
  Sex: Male
  Weight: 91 kg

DRUGS (12)
  1. AVASTIN [Suspect]
     Indication: PRODUCT USED FOR UNKNOWN INDICATION
     Route: 065
     Dates: start: 200801
  2. AVASTIN [Suspect]
     Route: 065
     Dates: end: 20081231
  3. XELODA [Concomitant]
     Route: 065
     Dates: start: 20081017
  4. OXALIPLATIN [Concomitant]
     Route: 065
     Dates: start: 20081017
  5. IRINOTECAN [Concomitant]
     Dosage: DOSE: 180-200MG
     Route: 065
     Dates: start: 200801
  6. IRINOTECAN [Concomitant]
     Route: 065
     Dates: start: 20090213
  7. LEUCOVORIN [Concomitant]
     Route: 065
     Dates: start: 200801
  8. LEUCOVORIN [Concomitant]
     Route: 065
     Dates: start: 200509
  9. LEUCOVORIN [Concomitant]
     Route: 065
     Dates: start: 20090213
  10. FLUOROURACIL [Concomitant]
     Dosage: DOSE: 900-1000MG
     Route: 065
     Dates: start: 200801
  11. FLUOROURACIL [Concomitant]
     Route: 065
     Dates: start: 200509
  12. FLUOROURACIL [Concomitant]
     Route: 065
     Dates: start: 20090213

REACTIONS (10)
  - Disease progression [Fatal]
  - Duodenal perforation [Recovered/Resolved]
  - Diarrhoea [Unknown]
  - Nausea [Unknown]
  - Respiratory tract infection [Unknown]
  - Gastrointestinal disorder [Unknown]
  - Asthenia [Unknown]
  - Anaemia [Unknown]
  - Jaundice [Unknown]
  - Hypoalbuminaemia [Unknown]
